FAERS Safety Report 12728894 (Version 3)
Quarter: 2016Q3

REPORT INFORMATION
  Report Type: Spontaneous
  Country: US (occurrence: US)
  Receive Date: 20160909
  Receipt Date: 20160929
  Transmission Date: 20161109
  Serious: Yes (Hospitalization, Other)
  Sender: FDA-Public Use
  Company Number: US-009507513-1609USA000281

PATIENT
  Age: 41 Year
  Sex: Female
  Weight: 81.63 kg

DRUGS (4)
  1. NUVARING [Suspect]
     Active Substance: ETHINYL ESTRADIOL\ETONOGESTREL
     Indication: CONTRACEPTION
     Dosage: UNK
     Route: 067
  2. ALLEGRA [Concomitant]
     Active Substance: FEXOFENADINE HYDROCHLORIDE
     Dosage: UNK
  3. MIRALAX [Concomitant]
     Active Substance: POLYETHYLENE GLYCOL 3350
     Dosage: UNK
  4. SYNTHROID [Concomitant]
     Active Substance: LEVOTHYROXINE SODIUM
     Dosage: 112 MICROGRAM, ONCE DAILY

REACTIONS (16)
  - Device dislocation [Not Recovered/Not Resolved]
  - Abdominal adhesions [Unknown]
  - Oophorectomy [Unknown]
  - Hysterectomy [Unknown]
  - Pelvic adhesions [Unknown]
  - Pain [Unknown]
  - Discomfort [Unknown]
  - Hepatic displacement [Recovered/Resolved]
  - Adverse event [Unknown]
  - Cholecystectomy [Unknown]
  - Internal hernia [Unknown]
  - Vomiting [Unknown]
  - Ileus [Unknown]
  - Muscle spasms [Unknown]
  - Pelvic adhesions [Unknown]
  - Endometriosis [Unknown]

NARRATIVE: CASE EVENT DATE: 200703
